FAERS Safety Report 7535361-8 (Version None)
Quarter: 2011Q2

REPORT INFORMATION
  Report Type: 
  Country: None (occurrence: None)
  Receive Date: 20110609
  Receipt Date: 20080218
  Transmission Date: 20111010
  Serious: Yes (Death)
  Sender: FDA-Public Use
  Company Number: PHFR2008GB00893

PATIENT
  Sex: Female

DRUGS (2)
  1. CLOZAPINE [Suspect]
     Indication: SCHIZOPHRENIA
     Route: 048
     Dates: end: 20041001
  2. CLOZAPINE [Suspect]
     Route: 048
     Dates: start: 20041220

REACTIONS (1)
  - RESPIRATORY DISORDER [None]
